FAERS Safety Report 7422524-5 (Version None)
Quarter: 2011Q2

REPORT INFORMATION
  Report Type: 
  Country: None (occurrence: None)
  Receive Date: 20110419
  Receipt Date: 20110408
  Transmission Date: 20111010
  Serious: No
  Sender: FDA-Public Use
  Company Number: US-BIOGENIDEC-2011BI013675

PATIENT
  Sex: Female

DRUGS (2)
  1. AVONEX [Suspect]
     Indication: MULTIPLE SCLEROSIS
     Route: 030
     Dates: start: 20100317, end: 20100826
  2. AVONEX [Suspect]
     Route: 030
     Dates: start: 20020423, end: 20070101

REACTIONS (2)
  - MULTIPLE ALLERGIES [None]
  - MEMORY IMPAIRMENT [None]
